FAERS Safety Report 4462197-7 (Version None)
Quarter: 2004Q3

REPORT INFORMATION
  Report Type: 
  Country: None (occurrence: None)
  Receive Date: 20040924
  Receipt Date: 20040910
  Transmission Date: 20050211
  Serious: Yes (Hospitalization)
  Sender: FDA-Public Use
  Company Number: 2004057085

PATIENT
  Age: 69 Year
  Sex: Female
  Weight: 58.9676 kg

DRUGS (8)
  1. ZITHROMAX [Suspect]
     Indication: NASOPHARYNGITIS
     Dates: start: 20030501, end: 20030101
  2. PREDNISONE [Suspect]
     Indication: ILL-DEFINED DISORDER
     Dates: start: 20030101
  3. ATENOLOL [Concomitant]
  4. AMLODIPINE BESYLATE [Concomitant]
  5. HYDROCHLOROTHIAZIDE (HYDROCHLOROTHIAZIE) [Concomitant]
  6. POTASSIUM (POTASSIUM) [Concomitant]
  7. ASPIRIN [Concomitant]
  8. GAITFLOXACIN (GATIFLOXACIN) [Concomitant]

REACTIONS (6)
  - BLOOD PRESSURE INCREASED [None]
  - DYSPNOEA [None]
  - FATIGUE [None]
  - HAIR COLOUR CHANGES [None]
  - HAIR GROWTH ABNORMAL [None]
  - PULMONARY CONGESTION [None]
